FAERS Safety Report 5620149-5 (Version None)
Quarter: 2008Q1

REPORT INFORMATION
  Report Type: 
  Country: None (occurrence: None)
  Receive Date: 20080208
  Receipt Date: 20080130
  Transmission Date: 20080703
  Serious: No
  Sender: FDA-Public Use
  Company Number: US-BAXTER-2008BH000638

PATIENT
  Age: 7 Year
  Sex: Female
  Weight: 27 kg

DRUGS (4)
  1. HEPARIN SODIUM [Suspect]
     Indication: LOW DENSITY LIPOPROTEIN APHERESIS
     Route: 040
     Dates: start: 20080122, end: 20080122
  2. LIPITOR [Concomitant]
     Indication: BLOOD CHOLESTEROL INCREASED
     Route: 048
  3. ZETIA [Concomitant]
     Indication: BLOOD CHOLESTEROL INCREASED
     Route: 048
  4. IRON [Concomitant]
     Indication: ANAEMIA
     Route: 048

REACTIONS (6)
  - ABDOMINAL PAIN UPPER [None]
  - CHEST PAIN [None]
  - FLUSHING [None]
  - LIP SWELLING [None]
  - PALLOR [None]
  - PHARYNGEAL OEDEMA [None]
